FAERS Safety Report 20347354 (Version 1)
Quarter: 2022Q1

REPORT INFORMATION
  Report Type: Spontaneous
  Country: US (occurrence: None)
  Receive Date: 20220118
  Receipt Date: 20220118
  Transmission Date: 20220424
  Serious: Yes (Hospitalization)
  Sender: FDA-Public Use
  Company Number: None

PATIENT
  Age: 87 Year
  Sex: Male

DRUGS (1)
  1. APIXABAN [Suspect]
     Active Substance: APIXABAN
     Indication: Atrial fibrillation
     Dosage: OTHER QUANTITY : 2.5MG;?FREQUENCY : TWICE A DAY;?
     Route: 048
     Dates: start: 20200501, end: 20211007

REACTIONS (5)
  - Acute respiratory failure [None]
  - Urinary tract infection [None]
  - Blue toe syndrome [None]
  - Gastric haemorrhage [None]
  - Iron deficiency anaemia [None]

NARRATIVE: CASE EVENT DATE: 20211009
